FAERS Safety Report 10244167 (Version 1)
Quarter: 2014Q2

REPORT INFORMATION
  Report Type: Spontaneous
  Country: US (occurrence: US)
  Receive Date: 20140618
  Receipt Date: 20140618
  Transmission Date: 20141212
  Serious: Yes (Hospitalization)
  Sender: FDA-Public Use
  Company Number: US-009507513-1406USA008808

PATIENT
  Age: 19 Year
  Sex: Female
  Weight: 49.43 kg

DRUGS (2)
  1. IMPLANON [Suspect]
     Indication: CONTRACEPTION
     Dosage: 1 ROD /3 YEARS
     Route: 059
     Dates: start: 20110910
  2. ADVIL [Concomitant]
     Dosage: UNK

REACTIONS (1)
  - Haemorrhage [Unknown]
